FAERS Safety Report 4746418-9 (Version None)
Quarter: 2005Q3

REPORT INFORMATION
  Report Type: 
  Country: None (occurrence: None)
  Receive Date: 20050815
  Receipt Date: 20050729
  Transmission Date: 20060218
  Serious: Yes (Death, Other)
  Sender: FDA-Public Use
  Company Number: JP_050707036

PATIENT
  Age: 77 Year
  Sex: Male
  Weight: 58 kg

DRUGS (7)
  1. GEMZAR [Suspect]
     Indication: LUNG ADENOCARCINOMA STAGE III
     Dosage: 1200 MG OTHER
     Dates: start: 20040519, end: 20040906
  2. PARAPLATIN [Concomitant]
  3. ALLOPURINOL [Concomitant]
  4. MAGNESIM OXIDE HEAVY [Concomitant]
  5. AZUCURENIN S [Concomitant]
  6. ASPIRIN [Concomitant]
  7. ENALAPRIL MALEATE [Concomitant]

REACTIONS (6)
  - CONSTIPATION [None]
  - GASTRITIS [None]
  - LUNG NEOPLASM MALIGNANT [None]
  - MALIGNANT NEOPLASM PROGRESSION [None]
  - PNEUMOCYSTIS JIROVECI PNEUMONIA [None]
  - PULMONARY ALVEOLAR HAEMORRHAGE [None]
